FAERS Safety Report 21440890 (Version 2)
Quarter: 2022Q4

REPORT INFORMATION
  Report Type: Report from Study
  Country: FR (occurrence: FR)
  Receive Date: 20221011
  Receipt Date: 20221126
  Transmission Date: 20230112
  Serious: Yes (Other)
  Sender: FDA-Public Use
  Company Number: FR-ABBVIE-4149500

PATIENT
  Age: 70 Year
  Sex: Male

DRUGS (2)
  1. CARBIDOPA\LEVODOPA [Suspect]
     Active Substance: CARBIDOPA\LEVODOPA
     Indication: Parkinson^s disease
     Dates: start: 20210330
  2. CARBIDOPA\LEVODOPA [Suspect]
     Active Substance: CARBIDOPA\LEVODOPA
     Route: 050
     Dates: start: 20210330

REACTIONS (8)
  - Foot fracture [Unknown]
  - Gastrooesophageal reflux disease [Unknown]
  - Dyskinesia [Unknown]
  - Unevaluable event [Unknown]
  - Bradykinesia [Unknown]
  - Dysphagia [Unknown]
  - Fall [Unknown]
  - Cough [Unknown]

NARRATIVE: CASE EVENT DATE: 20220801
